FAERS Safety Report 21924067 (Version 1)
Quarter: 2023Q1

REPORT INFORMATION
  Report Type: Spontaneous
  Country: US (occurrence: US)
  Receive Date: 20230130
  Receipt Date: 20230130
  Transmission Date: 20230418
  Serious: No
  Sender: FDA-Public Use
  Company Number: US-UCBSA-2022003823

PATIENT
  Age: 2 Month
  Sex: Male

DRUGS (10)
  1. LEVETIRACETAM [Suspect]
     Active Substance: LEVETIRACETAM
     Indication: Seizure
     Dosage: 60 MG/KG
  2. LEVETIRACETAM [Suspect]
     Active Substance: LEVETIRACETAM
     Dosage: 10 MILLIGRAM/KILOGRAM, 2X/DAY (BID)
  3. AMPICILLIN [Concomitant]
     Active Substance: AMPICILLIN
     Indication: Staphylococcal infection
     Dosage: 100 MILLIGRAM/KILOGRAM, 2X/DAY (BID)
  4. GENTAMICIN [Concomitant]
     Active Substance: GENTAMICIN
     Indication: Staphylococcal infection
     Dosage: 5 MG/KG EVERY 36 H
  5. GENTAMICIN [Concomitant]
     Active Substance: GENTAMICIN
     Indication: Staphylococcal bacteraemia
     Dosage: 1.5 MILLIGRAM/KILOGRAM, 3X/DAY (TID)
  6. VANCOMYCIN [Concomitant]
     Active Substance: VANCOMYCIN
     Indication: Staphylococcal infection
     Dosage: 10 MILLIGRAM/KILOGRAM, 2X/DAY (BID)
  7. OXACILLIN [Concomitant]
     Active Substance: OXACILLIN SODIUM
     Indication: Staphylococcal bacteraemia
     Dosage: 50 MILLIGRAM/KILOGRAM, 3X/DAY (TID)
  8. ENOXAPARIN [Concomitant]
     Active Substance: ENOXAPARIN
     Indication: Thrombosis
     Dosage: 2 MILLIGRAM/KILOGRAM, 2X/DAY (BID)
  9. CEFEPIME [Concomitant]
     Active Substance: CEFEPIME HYDROCHLORIDE
     Indication: Gastrointestinal necrosis
     Dosage: 45 MILLIGRAM/KILOGRAM, 2X/DAY (BID)
  10. METRONIDAZOLE [Concomitant]
     Active Substance: METRONIDAZOLE
     Indication: Gastrointestinal necrosis
     Dosage: 7.5 MILLIGRAM/KILOGRAM, 4X/DAY (QID)

REACTIONS (1)
  - Drug ineffective [Unknown]
